FAERS Safety Report 5801363-2 (Version None)
Quarter: 2008Q3

REPORT INFORMATION
  Report Type: 
  Country: None (occurrence: None)
  Receive Date: 20080707
  Receipt Date: 20080624
  Transmission Date: 20090109
  Serious: Yes (Other)
  Sender: FDA-Public Use
  Company Number: CH-NOVOPROD-272033

PATIENT
  Age: 25 Year
  Sex: Female

DRUGS (5)
  1. NOVOSEVEN [Suspect]
     Indication: HAEMORRHAGE
     Dosage: 4.8 MG, UNK
     Route: 042
  2. NOVOSEVEN [Suspect]
     Dosage: 9.6 MG, UNK
     Route: 042
  3. PLATELETS [Concomitant]
     Indication: PROPHYLAXIS
  4. PLATELETS, CONCENTRATED [Concomitant]
     Dosage: 2 U, UNK
  5. RED BLOOD CELLS [Concomitant]

REACTIONS (2)
  - BUDD-CHIARI SYNDROME [None]
  - THROMBOSIS [None]
